FAERS Safety Report 18375565 (Version 2)
Quarter: 2020Q4

REPORT INFORMATION
  Report Type: Spontaneous
  Country: CA (occurrence: CA)
  Receive Date: 20201013
  Receipt Date: 20201224
  Transmission Date: 20210114
  Serious: Yes (Hospitalization, Other)
  Sender: FDA-Public Use
  Company Number: CA-RECORDATI RARE DISEASES-2092696

PATIENT
  Age: 64 Year
  Sex: Male

DRUGS (21)
  1. OMEPRAZOLE. [Concomitant]
     Active Substance: OMEPRAZOLE
  2. MAGNESIUM [Concomitant]
     Active Substance: MAGNESIUM
  3. SOMAVERT [Concomitant]
     Active Substance: PEGVISOMANT
  4. URSODIOL. [Concomitant]
     Active Substance: URSODIOL
  5. TRULICITY [Concomitant]
     Active Substance: DULAGLUTIDE
     Route: 058
  6. JAMP ASA [Concomitant]
     Active Substance: ASPIRIN
  7. VIT D [Concomitant]
     Active Substance: VITAMIN D NOS
  8. SIGNIFOR LAR [Suspect]
     Active Substance: PASIREOTIDE PAMOATE
  9. SIGNIFOR LAR [Suspect]
     Active Substance: PASIREOTIDE PAMOATE
     Dates: start: 20200708
  10. AVAPRO [Concomitant]
     Active Substance: IRBESARTAN
  11. METFORMIN [Concomitant]
     Active Substance: METFORMIN HYDROCHLORIDE
  12. APO-GLICLAZIDE [Concomitant]
     Active Substance: GLICLAZIDE
  13. SIGNIFOR LAR [Suspect]
     Active Substance: PASIREOTIDE PAMOATE
     Dates: start: 2019
  14. PREGABALIN. [Concomitant]
     Active Substance: PREGABALIN
  15. SYNTHROID [Concomitant]
     Active Substance: LEVOTHYROXINE SODIUM
  16. DOSTINEX [Concomitant]
     Active Substance: CABERGOLINE
  17. IRBESARTAN. [Concomitant]
     Active Substance: IRBESARTAN
  18. NOVOSYMVASTATIN [Concomitant]
  19. SIGNIFOR LAR [Suspect]
     Active Substance: PASIREOTIDE PAMOATE
     Indication: ACROMEGALY
     Dates: start: 20171006
  20. CORTEF [Concomitant]
     Active Substance: HYDROCORTISONE
  21. ROSUVASTATIN. [Concomitant]
     Active Substance: ROSUVASTATIN

REACTIONS (6)
  - Fall [Recovered/Resolved]
  - Blood pressure systolic increased [Unknown]
  - Bradycardia [Recovered/Resolved]
  - Arthralgia [Not Recovered/Not Resolved]
  - Myocardial infarction [Unknown]
  - Gait disturbance [Not Recovered/Not Resolved]

NARRATIVE: CASE EVENT DATE: 2020
